FAERS Safety Report 5909520-1 (Version None)
Quarter: 2008Q4

REPORT INFORMATION
  Report Type: 
  Country: None (occurrence: None)
  Receive Date: 20081002
  Receipt Date: 20081001
  Transmission Date: 20090506
  Serious: Yes (Hospitalization)
  Sender: FDA-Public Use
  Company Number: 2008SP004672

PATIENT
  Age: 63 Year
  Sex: Male
  Weight: 80 kg

DRUGS (4)
  1. PEG-INTRON [Suspect]
     Indication: HEPATITIS C
     Dosage: 120 MCG;QW;SC
     Route: 058
     Dates: start: 20070912, end: 20071010
  2. REBETOL [Suspect]
     Indication: HEPATITIS C
     Dosage: 1000 MG;QD;PO  800 MG;QD;PO
     Route: 048
     Dates: start: 20070912, end: 20071003
  3. REBETOL [Suspect]
     Indication: HEPATITIS C
     Dosage: 1000 MG;QD;PO  800 MG;QD;PO
     Route: 048
     Dates: start: 20071003, end: 20071014
  4. LORFENAMIN [Concomitant]

REACTIONS (12)
  - BACTERIA STOOL IDENTIFIED [None]
  - BLOOD CREATININE INCREASED [None]
  - C-REACTIVE PROTEIN INCREASED [None]
  - DISSEMINATED INTRAVASCULAR COAGULATION [None]
  - ESCHERICHIA INFECTION [None]
  - MESENTERIC PANNICULITIS [None]
  - PERITONITIS [None]
  - PLATELET COUNT DECREASED [None]
  - PROCTITIS [None]
  - PROTHROMBIN TIME SHORTENED [None]
  - SEPSIS [None]
  - WHITE BLOOD CELL COUNT INCREASED [None]
